FAERS Safety Report 7633265-3 (Version None)
Quarter: 2011Q3

REPORT INFORMATION
  Report Type: 
  Country: None (occurrence: None)
  Receive Date: 20110725
  Receipt Date: 20110721
  Transmission Date: 20111222
  Serious: Yes (Death)
  Sender: FDA-Public Use
  Company Number: CA-ROCHE-791414

PATIENT
  Age: 21 Year
  Sex: Female

DRUGS (7)
  1. COCAINE [Suspect]
     Route: 065
  2. DIAZEPAM [Suspect]
     Route: 048
  3. METHYLENEDIOXYAMPHETAMINE [Suspect]
     Dosage: DRUG REPORTED AS MDA
     Route: 065
  4. MORPHINE SULFATE [Suspect]
     Route: 048
  5. LEVAMISOLE [Suspect]
     Route: 048
  6. MDMA [Suspect]
     Route: 065
  7. METHAMPHETAMINE HYDROCHLORIDE [Suspect]
     Route: 065

REACTIONS (2)
  - SUBSTANCE ABUSE [None]
  - TOXICITY TO VARIOUS AGENTS [None]
